FAERS Safety Report 23131762 (Version 5)
Quarter: 2024Q1

REPORT INFORMATION
  Report Type: Spontaneous
  Country: RS (occurrence: RS)
  Receive Date: 20231031
  Receipt Date: 20240102
  Transmission Date: 20240410
  Serious: Yes (Other)
  Sender: FDA-Public Use
  Company Number: RS-SA-SAC20231026001644

PATIENT
  Age: 45 Year
  Sex: Female

DRUGS (16)
  1. APIDRA SOLOSTAR [Suspect]
     Active Substance: INSULIN GLULISINE
     Indication: Type 1 diabetes mellitus
     Dosage: 6-8 UNITS THREE TIMES A DAY
     Route: 058
     Dates: start: 2009, end: 20231012
  2. LANTUS [Concomitant]
     Active Substance: INSULIN GLARGINE
     Indication: Type 1 diabetes mellitus
     Dosage: 30 IU, QD (IN THE EVENING)
     Route: 058
     Dates: start: 2009
  3. NOVORAPID [Concomitant]
     Active Substance: INSULIN ASPART
     Dosage: UNK
  4. BERLITION [Concomitant]
     Dosage: 600 MG
  5. THIOCTIC ACID [Concomitant]
     Active Substance: THIOCTIC ACID
     Dosage: 600MG
  6. PREGABALIN [Concomitant]
     Active Substance: PREGABALIN
     Dosage: 75 MG
  7. MILGAMMA [BENFOTIAMINE;PYRIDOXINE HYDROCHLORIDE] [Concomitant]
     Dosage: 75 MG
  8. PYRIDOXINE [Concomitant]
     Active Substance: PYRIDOXINE
     Dosage: 100 MG
  9. CILOSTAZOL [Concomitant]
     Active Substance: CILOSTAZOL
     Indication: Peripheral vascular disorder
     Dosage: 100 MG
  10. SALICYLIC ACID [Concomitant]
     Active Substance: SALICYLIC ACID
     Dosage: 100 MG
  11. IRON [Concomitant]
     Active Substance: IRON
     Dosage: 100 MG
  12. FOLIC ACID [Concomitant]
     Active Substance: FOLIC ACID
     Dosage: 100 MG
  13. NEBIVOLOL [Concomitant]
     Active Substance: NEBIVOLOL
     Dosage: 5 MG
  14. TORSEMIDE [Concomitant]
     Active Substance: TORSEMIDE
     Dosage: 5 MG
  15. PANTOPRAZOLE [Concomitant]
     Active Substance: PANTOPRAZOLE
     Dosage: 40 MG
  16. ROSUVASTATIN [Concomitant]
     Active Substance: ROSUVASTATIN
     Dosage: 10 MG

REACTIONS (6)
  - Neuropathy peripheral [Unknown]
  - Blood glucose fluctuation [Recovered/Resolved]
  - Device mechanical issue [Unknown]
  - Malaise [Recovered/Resolved]
  - Peripheral vascular disorder [Unknown]
  - Glycosylated haemoglobin abnormal [Unknown]

NARRATIVE: CASE EVENT DATE: 20200101
